FAERS Safety Report 4655080-5 (Version None)
Quarter: 2005Q2

REPORT INFORMATION
  Report Type: 
  Country: None (occurrence: None)
  Receive Date: 20050503
  Receipt Date: 20050426
  Transmission Date: 20051028
  Serious: Yes (Death)
  Sender: FDA-Public Use
  Company Number: 2005AC00653

PATIENT
  Sex: Female

DRUGS (2)
  1. SEROQUEL [Suspect]
     Dates: start: 20020101
  2. DIAZEPAM [Concomitant]

REACTIONS (4)
  - BLOOD GLUCOSE INCREASED [None]
  - FAT TISSUE INCREASED [None]
  - GASTROINTESTINAL DISORDER [None]
  - PANCREATITIS [None]
